FAERS Safety Report 24223540 (Version 1)
Quarter: 2024Q3

REPORT INFORMATION
  Report Type: Spontaneous
  Country: US (occurrence: US)
  Receive Date: 20240819
  Receipt Date: 20240819
  Transmission Date: 20241016
  Serious: Yes (Other)
  Sender: ODIN PHARMACEUTICALS
  Company Number: USA--2024-US-000608

PATIENT
  Sex: 0

DRUGS (1)
  1. SUCCINYLCHOLINE CHLORIDE [Suspect]
     Active Substance: SUCCINYLCHOLINE CHLORIDE
     Dosage: 120 MG X 1

REACTIONS (1)
  - Therapeutic response decreased [Unknown]
